FAERS Safety Report 8087175-0 (Version None)
Quarter: 2012Q1

REPORT INFORMATION
  Report Type: 
  Country: None (occurrence: None)
  Receive Date: 20120128
  Receipt Date: 20110418
  Transmission Date: 20120608
  Serious: No
  Sender: FDA-Public Use
  Company Number: US-ABBOTT-11P-163-0719423-00

PATIENT
  Sex: Male
  Weight: 75.818 kg

DRUGS (4)
  1. SIMVASTATIN [Concomitant]
     Indication: BLOOD CHOLESTEROL INCREASED
  2. AMLODIPINE BESYLATE [Concomitant]
     Indication: HYPERTENSION
  3. PENTASA [Suspect]
     Indication: CROHN'S DISEASE
     Dosage: INSTRUCTED TO STOP PRIOR TO DENTAL VISITS
     Route: 048
  4. HUMIRA [Suspect]
     Indication: CROHN'S DISEASE
     Route: 058
     Dates: start: 20090901

REACTIONS (3)
  - GINGIVAL BLEEDING [None]
  - BURNING SENSATION [None]
  - SINUSITIS [None]
